FAERS Safety Report 7167311-0 (Version None)
Quarter: 2010Q4

REPORT INFORMATION
  Report Type: 
  Country: None (occurrence: None)
  Receive Date: 20101216
  Receipt Date: 20101203
  Transmission Date: 20110411
  Serious: Yes (Other)
  Sender: FDA-Public Use
  Company Number: US-ELI_LILLY_AND_COMPANY-US201012001253

PATIENT
  Age: 69 Year
  Sex: Female

DRUGS (6)
  1. CYMBALTA [Suspect]
     Dosage: 60 D/F, 2/D
  2. GABAPENTIN [Concomitant]
     Dosage: 600 D/F, DAILY (1/D)
  3. TRICOR [Concomitant]
     Dosage: 145 D/F, DAILY (1/D)
  4. GLIPIZIDE [Concomitant]
     Dosage: 2.5 D/F, DAILY (1/D)
  5. LEVOXYL [Concomitant]
     Dosage: 0.175 D/F, DAILY (1/D)
  6. ENALAPRIL MALEATE [Concomitant]
     Dosage: 5 D/F, UNKNOWN

REACTIONS (1)
  - SKIN CANCER [None]
